FAERS Safety Report 16865539 (Version 3)
Quarter: 2019Q4

REPORT INFORMATION
  Report Type: Spontaneous
  Country: JP (occurrence: JP)
  Receive Date: 20190930
  Receipt Date: 20191115
  Transmission Date: 20200122
  Serious: Yes (Hospitalization, Other)
  Sender: FDA-Public Use
  Company Number: JP-JNJFOC-20190929145

PATIENT
  Age: 84 Year
  Sex: Male

DRUGS (32)
  1. RELVAR ELLIPTA [Suspect]
     Active Substance: FLUTICASONE FUROATE\VILANTEROL TRIFENATATE
     Indication: PRODUCT USED FOR UNKNOWN INDICATION
     Dosage: 200 UG, QD
     Route: 055
     Dates: start: 20190710
  2. ONEALFA [Concomitant]
     Active Substance: ALFACALCIDOL
     Indication: PRODUCT USED FOR UNKNOWN INDICATION
     Dosage: 0.5 UG, QD (AFTER BREAKFAST)
     Route: 065
  3. MUCOSTA [Concomitant]
     Active Substance: REBAMIPIDE
     Indication: PRODUCT USED FOR UNKNOWN INDICATION
     Dosage: 100 MG, TID(AFTER EVERY MEAL)
     Route: 065
     Dates: end: 20190903
  4. LASIX [Concomitant]
     Active Substance: FUROSEMIDE
     Indication: PRODUCT USED FOR UNKNOWN INDICATION
     Dosage: 20 MG, QD(AFTER BREAKFAST)
     Route: 065
     Dates: end: 20190901
  5. ISOTONIC SODIUM CHLORIDE SOLUTION [Concomitant]
     Active Substance: SODIUM CHLORIDE
     Indication: PRODUCT USED FOR UNKNOWN INDICATION
     Dosage: 15.5 ML, BID?DRUG CUMULATIVE DOSAGE NUMBER: 16 ML
     Route: 065
     Dates: end: 20190829
  6. CETIRIZINE HYDROCHLORIDE. [Suspect]
     Active Substance: CETIRIZINE HYDROCHLORIDE
     Dosage: 20 MG, QD (BEFORE BEDTIME)
     Route: 048
     Dates: start: 20190831, end: 20190901
  7. ALDACTONE-A [Concomitant]
     Active Substance: SPIRONOLACTONE
     Indication: PRODUCT USED FOR UNKNOWN INDICATION
     Dosage: 25 MG, QD(AFTER BREAKFAST)
     Route: 065
     Dates: end: 20190903
  8. CETIRIZINE HYDROCHLORIDE. [Suspect]
     Active Substance: CETIRIZINE HYDROCHLORIDE
     Indication: PRODUCT USED FOR UNKNOWN INDICATION
     Dosage: 10MG, QD (BEFORE BEDTIME)
     Route: 048
     Dates: end: 20190830
  9. NUCALA [Suspect]
     Active Substance: MEPOLIZUMAB
     Route: 065
     Dates: start: 20191015, end: 20191015
  10. BERIZYM [Concomitant]
     Active Substance: CELLULASE\DIASTASE\LIPASE
     Indication: PRODUCT USED FOR UNKNOWN INDICATION
     Dosage: 1 DF, TID(AFTER EVERY MEAL)
     Route: 065
     Dates: end: 20190903
  11. LASIX [Concomitant]
     Active Substance: FUROSEMIDE
     Dosage: 20 MG (AFTER BREAKFAST), 10 MG(AFTER LUNCH)
     Route: 065
     Dates: start: 20190902, end: 20190903
  12. AMLODIPINE BESILATE [Concomitant]
     Active Substance: AMLODIPINE BESYLATE
     Indication: PRODUCT USED FOR UNKNOWN INDICATION
     Dosage: 5 MG, QD(AFTER BREAKFAST)
     Route: 065
     Dates: end: 20190903
  13. ISOTONIC SODIUM CHLORIDE SOLUTION [Concomitant]
     Active Substance: SODIUM CHLORIDE
     Dosage: 8 ML, BID
     Route: 065
     Dates: start: 20190830, end: 20190906
  14. INTAL [Concomitant]
     Active Substance: CROMOLYN SODIUM
     Indication: PRODUCT USED FOR UNKNOWN INDICATION
     Dosage: 1 DF, BID
     Route: 065
     Dates: end: 20190829
  15. WARFARIN POTASSIUM [Concomitant]
     Active Substance: WARFARIN POTASSIUM
     Indication: PRODUCT USED FOR UNKNOWN INDICATION
     Dosage: 2 MG, QD(AFTER DINNER)
     Route: 065
     Dates: end: 20190903
  16. MAGMITT [Concomitant]
     Active Substance: MAGNESIUM OXIDE
     Indication: PRODUCT USED FOR UNKNOWN INDICATION
     Dosage: 330 MG, BID(AFTER BREASFAST AND DINNER)
     Route: 065
  17. TOLVAPTAN [Concomitant]
     Active Substance: TOLVAPTAN
     Indication: PRODUCT USED FOR UNKNOWN INDICATION
     Route: 065
  18. PREDONINE [Concomitant]
     Active Substance: PREDNISOLONE
     Indication: PRODUCT USED FOR UNKNOWN INDICATION
     Dosage: 10-20 MG, PRN
     Route: 065
  19. SYMBICORT [Concomitant]
     Active Substance: BUDESONIDE\FORMOTEROL FUMARATE DIHYDRATE
     Indication: PRODUCT USED FOR UNKNOWN INDICATION
     Route: 065
  20. NUCALA [Suspect]
     Active Substance: MEPOLIZUMAB
     Indication: ASTHMA
     Dosage: 100 MG, QD
     Route: 058
     Dates: start: 20190827, end: 20190827
  21. BROMHEXINE HYDROCHLORIDE [Concomitant]
     Active Substance: BROMHEXINE HYDROCHLORIDE
     Indication: PRODUCT USED FOR UNKNOWN INDICATION
     Dosage: 2.5 ML, BID
     Route: 065
     Dates: end: 20190829
  22. SPIRIVA [Concomitant]
     Active Substance: TIOTROPIUM BROMIDE MONOHYDRATE
     Indication: PRODUCT USED FOR UNKNOWN INDICATION
     Dosage: UNK, QD
     Route: 065
  23. MUCOSOLVAN L [Concomitant]
     Active Substance: AMBROXOL HYDROCHLORIDE
     Indication: PRODUCT USED FOR UNKNOWN INDICATION
     Dosage: 45 MG, QD(AFTER DINNER)
     Route: 065
  24. METILDIGOXIN [Concomitant]
     Active Substance: METILDIGOXIN
     Indication: PRODUCT USED FOR UNKNOWN INDICATION
     Dosage: 0.1 MG, QD(AFTER BREAKFAST)
     Route: 065
     Dates: end: 20190903
  25. LASIX [Concomitant]
     Active Substance: FUROSEMIDE
     Dosage: 10 MG, QD (AFTER LUNCH)
     Route: 065
     Dates: start: 20190904, end: 20190908
  26. BROMHEXINE HYDROCHLORIDE [Concomitant]
     Active Substance: BROMHEXINE HYDROCHLORIDE
     Dosage: 2 ML, BID
     Route: 065
     Dates: start: 20190830, end: 20190906
  27. AZUNOL ST [Concomitant]
     Indication: PRODUCT USED FOR UNKNOWN INDICATION
     Route: 065
  28. CETIRIZINE HYDROCHLORIDE. [Suspect]
     Active Substance: CETIRIZINE HYDROCHLORIDE
     Dosage: 10 MG, QD (BEFORE BEDTIME)
     Route: 048
     Dates: start: 20190902, end: 20190903
  29. NEUROTROPIN [Concomitant]
     Active Substance: NEUROTROPIN
     Indication: PRODUCT USED FOR UNKNOWN INDICATION
     Dosage: 2 DF, BID(AFTER BREAKFAST AND DINNER)
     Route: 065
     Dates: end: 20190829
  30. KIPRES [Concomitant]
     Active Substance: MONTELUKAST SODIUM
     Indication: PRODUCT USED FOR UNKNOWN INDICATION
     Dosage: 10 MG, QD(AFTER DINNER)
     Route: 065
  31. LASIX [Concomitant]
     Active Substance: FUROSEMIDE
     Dosage: DRUG CUMULATIVE DOSAGE NUMBER 40 MG
     Route: 065
     Dates: start: 20190918
  32. LOXOPROFEN SODIUM [Concomitant]
     Active Substance: LOXOPROFEN SODIUM
     Indication: PRODUCT USED FOR UNKNOWN INDICATION
     Dosage: UNK, QD
     Route: 065

REACTIONS (5)
  - Pleural effusion [Recovered/Resolved]
  - Oedema peripheral [Recovered/Resolved]
  - Intentional product misuse [Unknown]
  - Blood potassium decreased [Recovering/Resolving]
  - Cardiac failure chronic [Recovered/Resolved]

NARRATIVE: CASE EVENT DATE: 20190831
